FAERS Safety Report 8809338 (Version 1)
Quarter: 2012Q4

REPORT INFORMATION
  Report Type: 
  Country: US (occurrence: US)
  Receive Date: 20120926
  Receipt Date: 20120926
  Transmission Date: 20130627
  Serious: Yes (Hospitalization, Other)
  Sender: FDA-Public Use
  Company Number: US-US-EMD SERONO, INC.-7162413

PATIENT
  Sex: Female

DRUGS (1)
  1. REBIF [Suspect]
     Indication: PRODUCT USED FOR UNKNOWN INDICATION
     Route: 058
     Dates: start: 20111214

REACTIONS (8)
  - Cerebrovascular accident [Recovering/Resolving]
  - Blood pressure increased [Recovered/Resolved]
  - Hemiparesis [Not Recovered/Not Resolved]
  - Aphasia [Recovered/Resolved]
  - Central nervous system lesion [Unknown]
  - Fall [Unknown]
  - Contusion [Not Recovered/Not Resolved]
  - Neuropathy peripheral [Not Recovered/Not Resolved]
